FAERS Safety Report 5139307-1 (Version None)
Quarter: 2006Q4

REPORT INFORMATION
  Report Type: 
  Country: None (occurrence: None)
  Receive Date: 20061024
  Receipt Date: 20061012
  Transmission Date: 20070319
  Serious: Yes (Other)
  Sender: FDA-Public Use
  Company Number: 230597

PATIENT
  Age: 44 Year
  Sex: Male

DRUGS (3)
  1. RAPTIVA [Suspect]
     Indication: PSORIASIS
     Dosage: 0.9 ML, 1/WEEK, SUBCUTANEOUS
     Route: 058
     Dates: start: 20060629, end: 20060914
  2. ENALAPRIL MALEATE [Concomitant]
  3. METFORMIN HCL [Concomitant]

REACTIONS (4)
  - DIABETES MELLITUS [None]
  - ERYTHRODERMIC PSORIASIS [None]
  - HYPERTENSION [None]
  - PAIN [None]
